FAERS Safety Report 23295481 (Version 2)
Quarter: 2024Q4

REPORT INFORMATION
  Report Type: Spontaneous
  Country: US (occurrence: US)
  Receive Date: 20231214
  Receipt Date: 20241217
  Transmission Date: 20250115
  Serious: No
  Sender: ALVOGEN
  Company Number: US-ALVOGEN-2023092397

PATIENT

DRUGS (2)
  1. FENTANYL [Suspect]
     Active Substance: FENTANYL
     Indication: Product used for unknown indication
     Dosage: EXP DATE: UU-AUG-2026 (BOX, 25MCG) MANUFACTURING DATE: 01-AUG-2023 (BOX)
  2. FENTANYL [Suspect]
     Active Substance: FENTANYL
     Indication: Product used for unknown indication
     Dosage: EXP DATE: UU-JUL-2026 (POUCH, 12MCG), MANUFACTURING DATE: 25-JUL-2023 (POUCH).

REACTIONS (3)
  - Product packaging issue [Unknown]
  - Product administration error [Unknown]
  - Incorrect dose administered [Unknown]
